FAERS Safety Report 6078010-0 (Version None)
Quarter: 2009Q1

REPORT INFORMATION
  Report Type: 
  Country: None (occurrence: None)
  Receive Date: 20090213
  Receipt Date: 20090202
  Transmission Date: 20090719
  Serious: Yes (Hospitalization, Other)
  Sender: FDA-Public Use
  Company Number: JP-PFIZER INC-2009166217

PATIENT

DRUGS (6)
  1. TOPOTECIN [Suspect]
     Indication: SMALL CELL LUNG CANCER STAGE UNSPECIFIED
     Dosage: 60 MG/M2 INTERMITTENT (12/8, 12/15, 12/22)
     Route: 041
     Dates: start: 20081208, end: 20081222
  2. LOXONIN [Suspect]
     Indication: BRONCHITIS
     Dosage: 60 MG, X1-2/DAY
     Route: 048
     Dates: start: 20090109, end: 20090118
  3. PANALDINE [Suspect]
     Indication: ILIAC ARTERY THROMBOSIS
     Dosage: 100 MG, 1X/DAY
     Route: 048
     Dates: start: 20081211, end: 20090118
  4. RANDA [Concomitant]
     Indication: SMALL CELL LUNG CANCER STAGE UNSPECIFIED
     Dosage: 60 MG/M2, 1X/DAY
     Route: 042
     Dates: start: 20081208, end: 20081208
  5. TAMIFLU [Concomitant]
     Indication: INFLUENZA
     Dosage: 150 MG, 1X/DAY
     Route: 048
     Dates: start: 20090110, end: 20090115
  6. KLARICID [Concomitant]
     Indication: BRONCHITIS
     Dosage: 200 MG, 2X/DAY
     Route: 048
     Dates: start: 20090110, end: 20090118

REACTIONS (2)
  - JAUNDICE [None]
  - LIVER DISORDER [None]
